FAERS Safety Report 10491370 (Version 1)
Quarter: 2014Q4

REPORT INFORMATION
  Report Type: Spontaneous
  Country: US (occurrence: US)
  Receive Date: 20141002
  Receipt Date: 20141002
  Transmission Date: 20150528
  Serious: No
  Sender: FDA-Public Use
  Company Number: US-GLAXOSMITHKLINE-A1052059A

PATIENT
  Age: 59 Year
  Sex: Female

DRUGS (11)
  1. GINKGO BILOBA [Concomitant]
     Active Substance: GINKGO
  2. LAMISIL [Concomitant]
     Active Substance: TERBINAFINE HYDROCHLORIDE
  3. PREVACID [Concomitant]
     Active Substance: LANSOPRAZOLE
  4. ZOLOFT [Concomitant]
     Active Substance: SERTRALINE HYDROCHLORIDE
  5. DETROL LA [Concomitant]
     Active Substance: TOLTERODINE TARTRATE
  6. ALBUTEROL. [Concomitant]
     Active Substance: ALBUTEROL
  7. MACROBID [Concomitant]
     Active Substance: NITROFURANTOIN\NITROFURANTOIN MONOHYDRATE
  8. SINGULAIR [Concomitant]
     Active Substance: MONTELUKAST SODIUM
  9. ADVAIR HFA [Suspect]
     Active Substance: FLUTICASONE PROPIONATE\SALMETEROL XINAFOATE
     Indication: ASTHMA
     Dosage: 2PUFF TWICE PER DAY
     Route: 055
     Dates: start: 2003
  10. BACTRIM [Concomitant]
     Active Substance: SULFAMETHOXAZOLE\TRIMETHOPRIM
  11. NEXIUM [Concomitant]
     Active Substance: ESOMEPRAZOLE MAGNESIUM

REACTIONS (5)
  - Vision blurred [Unknown]
  - Prescribed overdose [Not Recovered/Not Resolved]
  - Visual impairment [Unknown]
  - Cataract [Unknown]
  - Eye disorder [Unknown]

NARRATIVE: CASE EVENT DATE: 2003
